FAERS Safety Report 21018732 (Version 1)
Quarter: 2022Q2

REPORT INFORMATION
  Report Type: Spontaneous
  Country: US (occurrence: None)
  Receive Date: 20220628
  Receipt Date: 20220628
  Transmission Date: 20220721
  Serious: Yes (Hospitalization)
  Sender: FDA-Public Use
  Company Number: None

PATIENT
  Age: 15 Month
  Sex: Female

DRUGS (1)
  1. SILDENAFIL [Suspect]
     Active Substance: SILDENAFIL
     Indication: Pulmonary arterial hypertension
     Dosage: 7MG EVERY 8 HOURS  G-TUBE?
     Route: 050
     Dates: start: 20220324

REACTIONS (1)
  - Viral infection [None]

NARRATIVE: CASE EVENT DATE: 20220510
